FAERS Safety Report 26132974 (Version 1)
Quarter: 2025Q4

REPORT INFORMATION
  Report Type: Report from Study
  Country: US (occurrence: US)
  Receive Date: 20251209
  Receipt Date: 20251209
  Transmission Date: 20260117
  Serious: Yes (Other)
  Sender: TAKEDA
  Company Number: US-TAKEDA-2025TUS069825

PATIENT
  Sex: Female
  Weight: 82 kg

DRUGS (34)
  1. TEDUGLUTIDE [Suspect]
     Active Substance: TEDUGLUTIDE
     Indication: Short-bowel syndrome
     Dosage: 4.1 MILLIGRAM, QD
  2. TEDUGLUTIDE [Suspect]
     Active Substance: TEDUGLUTIDE
     Dosage: 0.2 MILLILITER, QD
  3. TEDUGLUTIDE [Suspect]
     Active Substance: TEDUGLUTIDE
     Dosage: 0.3 MILLILITER, QD
  4. TEDUGLUTIDE [Suspect]
     Active Substance: TEDUGLUTIDE
  5. PEPCID [Concomitant]
     Active Substance: FAMOTIDINE
     Dosage: UNK
  6. MAGNESIUM [Concomitant]
     Active Substance: MAGNESIUM
     Dosage: UNK
  7. FEBUXOSTAT [Concomitant]
     Active Substance: FEBUXOSTAT
     Dosage: UNK
  8. GAS-X [Concomitant]
     Active Substance: DIMETHICONE
     Dosage: UNK
  9. SODIUM BICARBONATE [Concomitant]
     Active Substance: SODIUM BICARBONATE
     Dosage: UNK
  10. COMPAZINE [Concomitant]
     Active Substance: PROCHLORPERAZINE MALEATE
     Dosage: UNK
  11. ELIQUIS [Concomitant]
     Active Substance: APIXABAN
     Dosage: UNK
  12. SYNTHROID [Concomitant]
     Active Substance: LEVOTHYROXINE SODIUM
     Dosage: UNK
  13. DEXILANT [Concomitant]
     Active Substance: DEXLANSOPRAZOLE
     Dosage: UNK
  14. OCTREOTIDE ACETATE [Concomitant]
     Active Substance: OCTREOTIDE ACETATE
     Dosage: UNK
  15. DICLOFENAC SODIUM [Concomitant]
     Active Substance: DICLOFENAC SODIUM
     Dosage: UNK
  16. CYANOCOBALAMIN [Concomitant]
     Active Substance: CYANOCOBALAMIN
     Dosage: UNK
  17. ONDANSETRON [Concomitant]
     Active Substance: ONDANSETRON
     Dosage: UNK
  18. NAPROXEN [Concomitant]
     Active Substance: NAPROXEN
     Dosage: UNK
  19. DILAUDID [Concomitant]
     Active Substance: HYDROMORPHONE HYDROCHLORIDE
     Dosage: UNK
  20. RIZATRIPTAN [Concomitant]
     Active Substance: RIZATRIPTAN
     Dosage: UNK
  21. TRAMADOL HCL [Concomitant]
     Active Substance: TRAMADOL HYDROCHLORIDE
     Dosage: UNK
  22. POTASSIUM [Concomitant]
     Active Substance: POTASSIUM
     Dosage: UNK
  23. COLCRYS [Concomitant]
     Active Substance: COLCHICINE
     Dosage: UNK
  24. IRON [Concomitant]
     Active Substance: IRON
     Dosage: UNK
  25. ALLOPURINOL [Concomitant]
     Active Substance: ALLOPURINOL
     Dosage: UNK
  26. LORAZEPAM [Concomitant]
     Active Substance: LORAZEPAM
     Dosage: UNK
  27. DICYCLOMINE HYDROCHLORIDE [Concomitant]
     Active Substance: DICYCLOMINE HYDROCHLORIDE
     Dosage: UNK
  28. VITAMIN D [Concomitant]
     Active Substance: VITAMIN D NOS
     Dosage: UNK
  29. CALCIUM [Concomitant]
     Active Substance: CALCIUM
     Dosage: UNK
  30. ZINC [Concomitant]
     Active Substance: ZINC
     Dosage: UNK
  31. SANDOSTATIN LAR DEPOT [Concomitant]
     Active Substance: OCTREOTIDE ACETATE
     Dosage: UNK
  32. COLESTID [Concomitant]
     Active Substance: COLESTIPOL HYDROCHLORIDE
     Dosage: UNK
  33. CREON [Concomitant]
     Active Substance: PANCRELIPASE AMYLASE\PANCRELIPASE LIPASE\PANCRELIPASE PROTEASE
     Dosage: UNK
  34. BENTYL [Concomitant]
     Active Substance: DICYCLOMINE HYDROCHLORIDE
     Dosage: UNK

REACTIONS (7)
  - Crohn^s disease [Unknown]
  - Intestinal obstruction [Recovered/Resolved]
  - Fall [Unknown]
  - Clavicle fracture [Unknown]
  - Decreased appetite [Unknown]
  - Renal disorder [Unknown]
  - Weight decreased [Unknown]
